FAERS Safety Report 23324531 (Version 1)
Quarter: 2023Q4

REPORT INFORMATION
  Report Type: Spontaneous
  Country: JP (occurrence: JP)
  Receive Date: 20231221
  Receipt Date: 20231221
  Transmission Date: 20240110
  Serious: Yes (Other)
  Sender: FDA-Public Use
  Company Number: JP-TEVA-VS-3135278

PATIENT
  Age: 15 Year

DRUGS (9)
  1. PREDNISOLONE [Suspect]
     Active Substance: PREDNISOLONE
     Indication: Henoch-Schonlein purpura
     Route: 065
  2. CYCLOSPORINE [Suspect]
     Active Substance: CYCLOSPORINE
     Indication: Henoch-Schonlein purpura
     Route: 065
  3. AZATHIOPRINE [Suspect]
     Active Substance: AZATHIOPRINE
     Indication: Henoch-Schonlein purpura
     Route: 065
  4. MIZORIBINE [Suspect]
     Active Substance: MIZORIBINE
     Indication: Henoch-Schonlein purpura
     Route: 065
  5. DAPSONE [Suspect]
     Active Substance: DAPSONE
     Indication: Henoch-Schonlein purpura
     Route: 065
  6. MYCOPHENOLATE MOFETIL [Suspect]
     Active Substance: MYCOPHENOLATE MOFETIL
     Indication: Henoch-Schonlein purpura
     Route: 065
  7. COLCHICINE [Suspect]
     Active Substance: COLCHICINE
     Indication: Henoch-Schonlein purpura
     Route: 065
  8. HUMAN IMMUNOGLOBULIN G [Suspect]
     Active Substance: HUMAN IMMUNOGLOBULIN G
     Indication: Henoch-Schonlein purpura
     Dosage: DOSAGE: 1 G/KG
     Route: 042
  9. RITUXIMAB [Suspect]
     Active Substance: RITUXIMAB
     Indication: Henoch-Schonlein purpura
     Route: 065

REACTIONS (6)
  - Steroid dependence [Recovered/Resolved]
  - Rebound effect [Recovered/Resolved]
  - Drug ineffective [Unknown]
  - Henoch-Schonlein purpura [Recovered/Resolved]
  - Off label use [Unknown]
  - Condition aggravated [Recovered/Resolved]
